FAERS Safety Report 9794668 (Version 2)
Quarter: 2014Q1

REPORT INFORMATION
  Report Type: Report from Study
  Country: US (occurrence: US)
  Receive Date: 20140102
  Receipt Date: 20140204
  Transmission Date: 20141002
  Serious: Yes (Other)
  Sender: FDA-Public Use
  Company Number: US-ABBVIE-13P-163-1184273-00

PATIENT
  Age: 56 Year
  Sex: Female

DRUGS (16)
  1. HUMIRA [Suspect]
     Indication: CROHN^S DISEASE
     Dates: start: 20131118
  2. HUMIRA [Suspect]
     Dates: start: 20131119
  3. HUMIRA [Suspect]
     Dates: start: 20131210
  4. ASACOL [Concomitant]
     Indication: PRODUCT USED FOR UNKNOWN INDICATION
  5. ASACOL [Concomitant]
  6. MESALAMINE [Concomitant]
     Indication: MUSCULOSKELETAL DISCOMFORT
  7. LEVOTHYROXINE [Concomitant]
     Indication: HYPOTHYROIDISM
  8. VESICARE [Concomitant]
     Indication: BLADDER SPASM
  9. VESICARE [Concomitant]
     Indication: INCONTINENCE
  10. CAMPRAL [Concomitant]
     Indication: ALCOHOLISM
  11. NEXIUM [Concomitant]
     Indication: GASTROOESOPHAGEAL REFLUX DISEASE
  12. CETIRIZINE [Concomitant]
     Indication: MYCOTIC ALLERGY
  13. MULTIVITAMIN D3 [Concomitant]
     Indication: VITAMIN SUPPLEMENTATION
  14. B12 [Concomitant]
     Indication: VITAMIN B12 DEFICIENCY
  15. IRON [Concomitant]
     Indication: MINERAL SUPPLEMENTATION
  16. FOLIC ACID [Concomitant]
     Indication: VITAMIN SUPPLEMENTATION

REACTIONS (4)
  - Cyst [Unknown]
  - Arthralgia [Not Recovered/Not Resolved]
  - Dizziness [Not Recovered/Not Resolved]
  - Pain [Unknown]
